FAERS Safety Report 11829683 (Version 1)
Quarter: 2015Q4

REPORT INFORMATION
  Report Type: Spontaneous
  Country: US (occurrence: US)
  Receive Date: 20151212
  Receipt Date: 20151212
  Transmission Date: 20160305
  Serious: Yes (Death)
  Sender: FDA-Public Use
  Company Number: US-ASTRAZENECA-2015SF21890

PATIENT
  Age: 62 Year
  Sex: Female

DRUGS (6)
  1. CANDESARTAN CILEXETIL AND HYDROCHLOROTHIAZIDE [Suspect]
     Active Substance: CANDESARTAN CILEXETIL\HYDROCHLOROTHIAZIDE
     Route: 048
  2. AMLODIPINE [Suspect]
     Active Substance: AMLODIPINE BESYLATE
     Route: 048
  3. METOPROLOL [Suspect]
     Active Substance: METOPROLOL
     Route: 048
  4. HYDROCHLOROTHIAZIDE/TRIAMTERENE [Suspect]
     Active Substance: HYDROCHLOROTHIAZIDE\TRIAMTERENE
     Route: 048
  5. GLUCAGON. [Suspect]
     Active Substance: GLUCAGON
     Route: 048
  6. CLONIDINE. [Suspect]
     Active Substance: CLONIDINE
     Route: 048

REACTIONS (2)
  - Completed suicide [Fatal]
  - Toxicity to various agents [Fatal]
